FAERS Safety Report 6000178-2 (Version None)
Quarter: 2008Q4

REPORT INFORMATION
  Report Type: 
  Country: None (occurrence: None)
  Receive Date: 20081211
  Receipt Date: 20081211
  Transmission Date: 20090506
  Serious: Yes (Hospitalization)
  Sender: FDA-Public Use
  Company Number: None

PATIENT
  Sex: Male
  Weight: 85.9 kg

DRUGS (9)
  1. SEROQUEL [Suspect]
     Indication: SCHIZOPHRENIA
     Dosage: 400 MG @ HS
  2. SIMVASTATIN [Concomitant]
  3. PRILOSEC [Concomitant]
  4. DEPAKOTE [Concomitant]
  5. BUPROPION [Concomitant]
  6. VALIUM [Concomitant]
  7. SEROQUEL [Concomitant]
  8. COMBIVENT [Concomitant]
  9. IMITREX [Concomitant]

REACTIONS (2)
  - AGGRESSION [None]
  - POISONING [None]
